FAERS Safety Report 22751202 (Version 3)
Quarter: 2025Q4

REPORT INFORMATION
  Report Type: Spontaneous
  Country: US (occurrence: US)
  Receive Date: 20230726
  Receipt Date: 20251020
  Transmission Date: 20260118
  Serious: Yes (Other)
  Sender: CATALYST PHARMA
  Company Number: US-CATALYST PHARMACEUTICALS, INC-US-CATA-23-00416

PATIENT
  Sex: Female
  Weight: 78.912 kg

DRUGS (39)
  1. FIRDAPSE [Suspect]
     Active Substance: AMIFAMPRIDINE PHOSPHATE
     Indication: Myasthenic syndrome
     Dosage: 15 MG DAILY (HALF A TABLET THREE TIMES A DAY)
     Route: 048
     Dates: start: 20230202, end: 2023
  2. FIRDAPSE [Suspect]
     Active Substance: AMIFAMPRIDINE PHOSPHATE
     Dosage: 70 MILLIGRAM
     Route: 048
     Dates: start: 2023, end: 2023
  3. FIRDAPSE [Suspect]
     Active Substance: AMIFAMPRIDINE PHOSPHATE
     Dosage: 80 MILLIGRAM
     Route: 048
     Dates: start: 2023
  4. FIRDAPSE [Suspect]
     Active Substance: AMIFAMPRIDINE PHOSPHATE
     Dosage: 10 TABLETS TOTAL DAILY
     Route: 048
     Dates: start: 20240809
  5. ALENDRONATE SODIUM [Concomitant]
     Active Substance: ALENDRONATE SODIUM
     Indication: Osteoporosis
     Dosage: 70 MG WEEKLY
     Route: 048
  6. ALLEGRA [Concomitant]
     Active Substance: FEXOFENADINE HYDROCHLORIDE
     Indication: Rhinitis allergic
     Dosage: 180 MG DAILY
     Route: 048
  7. ASPIRIN [Concomitant]
     Active Substance: ASPIRIN
     Indication: Cardiovascular event prophylaxis
     Dosage: 81 MG DAILY
     Route: 048
  8. ADVIL [Concomitant]
     Active Substance: IBUPROFEN
     Indication: Pain
     Dosage: 400 MG TWICE A DAY
     Route: 065
  9. ANCIENT PROBIOTICS [Concomitant]
     Indication: Gastrointestinal disorder
     Dosage: ONE CAPSULE DAILY
     Route: 065
  10. ANCIENT PROBIOTICS [Concomitant]
     Indication: Prophylaxis
  11. CEFUROXIME [Concomitant]
     Active Substance: CEFUROXIME
     Indication: Staphylococcal infection
     Dosage: 250 MG DAILY
     Route: 048
  12. CYCLOBENZAPRINE [Concomitant]
     Active Substance: CYCLOBENZAPRINE
     Indication: Muscle spasms
     Dosage: 5 MG DAILY
     Route: 048
  13. CALCIPOTRIENE [Concomitant]
     Active Substance: CALCIPOTRIENE
     Indication: Psoriasis
     Dosage: TWICE A DAY
     Route: 061
  14. DOFETILIDE [Concomitant]
     Active Substance: DOFETILIDE
     Indication: Atrial fibrillation
     Dosage: 125 MCG DAILY
     Route: 065
  15. ELIQUIS [Concomitant]
     Active Substance: APIXABAN
     Indication: Thrombosis prophylaxis
     Dosage: 5 TWICE A DAY
     Route: 065
  16. GABAPENTIN/BENZOCAINE/PEROXIDE [Concomitant]
     Indication: Pain
     Dosage: THREE TIMES A DAY
     Route: 061
  17. DIETARY SUPPLEMENT [Concomitant]
     Active Substance: DIETARY SUPPLEMENT
     Indication: Gastrointestinal disorder
     Dosage: ONE CAPSULE DAILY
     Route: 065
  18. DIETARY SUPPLEMENT [Concomitant]
     Active Substance: DIETARY SUPPLEMENT
     Indication: Prophylaxis
  19. ACETAMINOPHEN\HYDROCODONE [Concomitant]
     Active Substance: ACETAMINOPHEN\HYDROCODONE
     Indication: Procedural pain
     Dosage: 5-300MG AS NEEDED
     Route: 065
  20. IPRATROPIUM [Concomitant]
     Active Substance: IPRATROPIUM
     Indication: Rhinitis allergic
     Dosage: THREE TIMES A DAY
     Route: 045
  21. LACTO [Concomitant]
     Indication: Bone disorder
     Dosage: DAILY
     Route: 065
  22. LACTO [Concomitant]
     Indication: Prophylaxis
  23. LEVOTHYROXINE [Concomitant]
     Active Substance: LEVOTHYROXINE
     Indication: Hypothyroidism
     Dosage: 75 MCG DAILY
     Route: 048
  24. MELOXICAM [Concomitant]
     Active Substance: MELOXICAM
     Indication: Pain
     Dosage: 15 MG DAILY
     Route: 048
  25. MESTINON [Concomitant]
     Active Substance: PYRIDOSTIGMINE BROMIDE
     Indication: Myasthenic syndrome
     Dosage: 60 MG EVERY 8 HOURS
     Route: 048
  26. MOTEGRITY [Concomitant]
     Active Substance: PRUCALOPRIDE SUCCINATE
     Indication: Constipation
     Dosage: 2 MG DAILY
     Route: 048
  27. MORPHINE SULFATE [Concomitant]
     Active Substance: MORPHINE SULFATE
     Indication: Procedural pain
     Dosage: 15MG AS NEEDED
     Route: 065
  28. MUPIROCIN [Concomitant]
     Active Substance: MUPIROCIN
     Indication: Staphylococcal infection
     Dosage: 2% DAILY
     Route: 061
  29. PROLIA [Concomitant]
     Active Substance: DENOSUMAB
     Indication: Osteoporosis
     Dosage: 60 MG PER ML EVERY 6 MONTHS
     Route: 058
  30. QNASL [Concomitant]
     Active Substance: BECLOMETHASONE DIPROPIONATE
     Indication: Rhinitis allergic
     Dosage: 2 SPRAYS DAILY
     Route: 045
  31. ROBAXIN [Concomitant]
     Active Substance: METHOCARBAMOL
     Indication: Muscle spasms
     Dosage: 750 MG AS NEEDED
     Route: 065
  32. SPECTRUM DIGESTIVE ENZYME [Concomitant]
     Indication: Gastrointestinal disorder
     Dosage: ONE CAPSULE DAILY
     Route: 065
  33. SPECTRUM DIGESTIVE ENZYME [Concomitant]
     Indication: Prophylaxis
  34. TRULANCE [Concomitant]
     Active Substance: PLECANATIDE
     Indication: Constipation
     Dosage: 3 MG EVERY WEEK
     Route: 048
  35. VENTOLIN [Concomitant]
     Active Substance: ALBUTEROL SULFATE
     Indication: Dyspnoea
     Dosage: AS NEEDED
     Route: 055
  36. VITAMIN D3 [Concomitant]
     Active Substance: CHOLECALCIFEROL
     Indication: Hypovitaminosis
     Dosage: DAILY
     Route: 065
  37. XANAX [Concomitant]
     Active Substance: ALPRAZOLAM
     Indication: Anxiety
     Dosage: 0.25 MG AS NEEDED
     Route: 048
  38. XIFAXAN [Concomitant]
     Active Substance: RIFAXIMIN
     Indication: Gastrointestinal microorganism overgrowth
     Dosage: 200 MG THREE TIMES A DAY
     Route: 065
  39. VITAMIN B12 [Concomitant]
     Active Substance: CYANOCOBALAMIN
     Indication: Hypovitaminosis
     Dosage: 1000 MCG WEEKLY
     Route: 065

REACTIONS (5)
  - Pulmonary function test decreased [Unknown]
  - Hypoxia [Not Recovered/Not Resolved]
  - Migraine [Not Recovered/Not Resolved]
  - Back disorder [Not Recovered/Not Resolved]
  - Muscle atrophy [Not Recovered/Not Resolved]

NARRATIVE: CASE EVENT DATE: 20230101
